FAERS Safety Report 10068916 (Version 2)
Quarter: 2014Q2

REPORT INFORMATION
  Report Type: Spontaneous
  Country: US (occurrence: US)
  Receive Date: 20140409
  Receipt Date: 20140505
  Transmission Date: 20141212
  Serious: Yes (Other)
  Sender: FDA-Public Use
  Company Number: US-FRI-1000066072

PATIENT
  Age: 43 Year
  Sex: Female
  Weight: 92 kg

DRUGS (5)
  1. VIIBRYD [Suspect]
     Indication: ANXIETY
     Dosage: 10MG
     Route: 048
     Dates: start: 20131126
  2. VIIBRYD [Suspect]
     Indication: ANXIETY
     Dosage: 20MG
     Route: 048
  3. VIIBRYD [Suspect]
     Dosage: 10MG
     Route: 048
  4. VIIBRYD [Suspect]
     Dosage: 5MG
     Route: 048
     Dates: end: 201403
  5. OXCARBAZEPINE [Concomitant]

REACTIONS (7)
  - Rectal haemorrhage [Recovered/Resolved]
  - Weight increased [Recovered/Resolved]
  - Weight decreased [Unknown]
  - Diarrhoea [Recovered/Resolved]
  - Somnolence [Recovered/Resolved]
  - Apathy [Recovered/Resolved]
  - Off label use [Recovered/Resolved]
